FAERS Safety Report 5919208-9 (Version None)
Quarter: 2008Q4

REPORT INFORMATION
  Report Type: 
  Country: None (occurrence: None)
  Receive Date: 20081014
  Receipt Date: 20081014
  Transmission Date: 20090506
  Serious: Yes (Other)
  Sender: FDA-Public Use
  Company Number: None

PATIENT
  Age: 16 Year
  Sex: Male
  Weight: 83.9154 kg

DRUGS (1)
  1. ACCUTANE [Suspect]
     Indication: ACNE
     Dosage: 30 MG QAM PO
     Route: 048
     Dates: start: 20080108, end: 20080618

REACTIONS (3)
  - COMPULSIVE HOARDING [None]
  - INTENTIONAL SELF-INJURY [None]
  - THEFT [None]
